FAERS Safety Report 19074379 (Version 2)
Quarter: 2021Q2

REPORT INFORMATION
  Report Type: Report from Study
  Country: NL (occurrence: NL)
  Receive Date: 20210330
  Receipt Date: 20210415
  Transmission Date: 20210717
  Serious: Yes (Hospitalization)
  Sender: FDA-Public Use
  Company Number: NL-BRISTOL-MYERS SQUIBB COMPANY-BMS-2021-028449

PATIENT
  Age: 79 Year
  Sex: Female

DRUGS (2)
  1. BLINDED ASPIRIN [Suspect]
     Active Substance: ASPIRIN
     Indication: CEREBROVASCULAR ACCIDENT PROPHYLAXIS
     Dosage: 5.0 MG
     Route: 065
     Dates: start: 20200326
  2. BLINDED APIXABAN [Suspect]
     Active Substance: APIXABAN
     Indication: CEREBROVASCULAR ACCIDENT PROPHYLAXIS
     Dosage: 5.0 MG
     Route: 065
     Dates: start: 20200326

REACTIONS (2)
  - Anaemia [Recovered/Resolved]
  - Diverticulum [Recovered/Resolved]

NARRATIVE: CASE EVENT DATE: 20200922
